FAERS Safety Report 7272316-5 (Version None)
Quarter: 2010Q4

REPORT INFORMATION
  Report Type: 
  Country: None (occurrence: None)
  Receive Date: 20101213
  Receipt Date: 20100322
  Transmission Date: 20110411
  Serious: Yes (Other)
  Sender: FDA-Public Use
  Company Number: US-JNJFOC-20100307047

PATIENT
  Age: 36 Month
  Weight: 23.1334 kg

DRUGS (1)
  1. PEPCID COMPLETE [Suspect]
     Indication: ACCIDENTAL EXPOSURE
     Dosage: WHOLE BOTTLE
     Dates: start: 20100317

REACTIONS (5)
  - ABDOMINAL DISCOMFORT [None]
  - ACCIDENTAL DRUG INTAKE BY CHILD [None]
  - ACCIDENTAL OVERDOSE [None]
  - CONSTIPATION [None]
  - PRODUCT PACKAGING ISSUE [None]
